FAERS Safety Report 10498156 (Version 2)
Quarter: 2014Q4

REPORT INFORMATION
  Report Type: Spontaneous
  Country: US (occurrence: US)
  Receive Date: 20141006
  Receipt Date: 20141016
  Transmission Date: 20150528
  Serious: Yes (Hospitalization, Other)
  Sender: FDA-Public Use
  Company Number: US-ABBVIE-14P-163-1290607-00

PATIENT
  Age: 67 Year
  Sex: Male
  Weight: 83.08 kg

DRUGS (7)
  1. DILTIAZEM [Suspect]
     Active Substance: DILTIAZEM
     Indication: ATRIAL FIBRILLATION
     Route: 065
     Dates: start: 2013, end: 2013
  2. METOPROLOL [Suspect]
     Active Substance: METOPROLOL
     Indication: ATRIAL FIBRILLATION
     Route: 065
     Dates: start: 2013, end: 2013
  3. ISOSORBIDE MONONITRATE EXTENDED RELEASE [Concomitant]
     Active Substance: ISOSORBIDE MONONITRATE
     Indication: PRODUCT USED FOR UNKNOWN INDICATION
     Route: 048
  4. METOPROLOL SUCCINATE ER [Concomitant]
     Active Substance: METOPROLOL SUCCINATE
     Indication: PRODUCT USED FOR UNKNOWN INDICATION
     Dosage: 1/2 DAILY
     Route: 048
     Dates: start: 20140204
  5. ANDROGEL [Suspect]
     Active Substance: TESTOSTERONE
     Indication: BLOOD TESTOSTERONE DECREASED
     Route: 061
     Dates: start: 201205, end: 201401
  6. DILTIAZEM [Suspect]
     Active Substance: DILTIAZEM
     Indication: ARRHYTHMIA
  7. METOPROLOL [Suspect]
     Active Substance: METOPROLOL
     Indication: ARRHYTHMIA

REACTIONS (13)
  - Chest pain [Not Recovered/Not Resolved]
  - Arrhythmia [Unknown]
  - Ventricular extrasystoles [Unknown]
  - Angina pectoris [Unknown]
  - Lung disorder [Unknown]
  - Pulse pressure increased [Not Recovered/Not Resolved]
  - Bundle branch block right [Unknown]
  - Heart rate irregular [Unknown]
  - Peripheral vascular disorder [Unknown]
  - Atrial fibrillation [Recovered/Resolved]
  - Drug ineffective [Unknown]
  - Bundle branch block left [Unknown]
  - Hypoaesthesia [Not Recovered/Not Resolved]

NARRATIVE: CASE EVENT DATE: 201211
